FAERS Safety Report 15912952 (Version 1)
Quarter: 2019Q1

REPORT INFORMATION
  Report Type: Spontaneous
  Country: US (occurrence: US)
  Receive Date: 20190204
  Receipt Date: 20190204
  Transmission Date: 20190417
  Serious: No
  Sender: FDA-Public Use
  Company Number: US-ABBVIE-18K-163-2443775-00

PATIENT
  Age: 37 Year
  Sex: Female

DRUGS (1)
  1. HUMIRA [Suspect]
     Active Substance: ADALIMUMAB
     Indication: HIDRADENITIS
     Dosage: STOPPED 2 WEEKS AGO
     Route: 058
     Dates: start: 201611, end: 201807

REACTIONS (5)
  - Abscess rupture [Unknown]
  - Upper respiratory tract infection [Unknown]
  - Bronchitis [Recovered/Resolved]
  - Hidradenitis [Recovering/Resolving]
  - Abscess limb [Recovering/Resolving]

NARRATIVE: CASE EVENT DATE: 201807
